FAERS Safety Report 18054638 (Version 1)
Quarter: 2020Q3

REPORT INFORMATION
  Report Type: Spontaneous
  Country: US (occurrence: US)
  Receive Date: 20200721
  Receipt Date: 20200721
  Transmission Date: 20201103
  Serious: Yes (Life-Threatening, Hospitalization)
  Sender: FDA-Public Use
  Company Number: None

PATIENT
  Age: 69 Year
  Sex: Male
  Weight: 128 kg

DRUGS (1)
  1. RIVAROXABAN (RIVAROXABAN 20MG TAB) [Suspect]
     Active Substance: RIVAROXABAN
     Indication: ATRIAL FIBRILLATION
     Dosage: OTHER FREQUENCY:PM;?
     Route: 048
     Dates: start: 20181012

REACTIONS (2)
  - Gastric haemorrhage [None]
  - Haemorrhage [None]

NARRATIVE: CASE EVENT DATE: 20200625
